FAERS Safety Report 11093918 (Version 1)
Quarter: 2015Q2

REPORT INFORMATION
  Report Type: Spontaneous
  Country: US (occurrence: None)
  Receive Date: 20150428
  Receipt Date: 20150428
  Transmission Date: 20150821
  Serious: Yes (Other)
  Sender: FDA-Public Use
  Company Number: PHEH2014US008596

PATIENT
  Age: 30 Year
  Sex: Female
  Weight: 88 kg

DRUGS (7)
  1. GILENYA [Suspect]
     Active Substance: FINGOLIMOD HYDROCHLORIDE
     Indication: RELAPSING-REMITTING MULTIPLE SCLEROSIS
     Route: 048
     Dates: start: 20131028
  2. PRISTIQ (DESVENLAFAXINE SUCCINATE) [Concomitant]
     Active Substance: DESVENLAFAXINE SUCCINATE
  3. VALACICLOVIR [Concomitant]
     Active Substance: VALACYCLOVIR HYDROCHLORIDE
  4. HYDROXYZINE [Concomitant]
     Active Substance: HYDROXYZINE\HYDROXYZINE HYDROCHLORIDE
  5. MONTELUKAST [Concomitant]
     Active Substance: MONTELUKAST SODIUM
  6. IBUPROFEN. [Concomitant]
     Active Substance: IBUPROFEN
  7. DOXEPIN [Concomitant]
     Active Substance: DOXEPIN

REACTIONS (3)
  - Dyspepsia [None]
  - Hepatic enzyme increased [None]
  - Abdominal pain upper [None]

NARRATIVE: CASE EVENT DATE: 201404
